FAERS Safety Report 17310832 (Version 1)
Quarter: 2020Q1

REPORT INFORMATION
  Report Type: Spontaneous
  Country: US (occurrence: US)
  Receive Date: 20200123
  Receipt Date: 20200123
  Transmission Date: 20200409
  Serious: Yes (Hospitalization)
  Sender: FDA-Public Use
  Company Number: US-ROCHE-2305169

PATIENT
  Age: 66 Year
  Sex: Male

DRUGS (2)
  1. RITUXAN [Suspect]
     Active Substance: RITUXIMAB
     Indication: HAIRY CELL LEUKAEMIA
     Dosage: 6 CYCLES;
     Route: 042
     Dates: start: 20190404
  2. BENDAMUSTINE [Suspect]
     Active Substance: BENDAMUSTINE
     Indication: HAIRY CELL LEUKAEMIA
     Dosage: 6 CYCLES;
     Route: 042
     Dates: start: 20190404

REACTIONS (6)
  - Intentional product use issue [Unknown]
  - Fatigue [Unknown]
  - Arthralgia [Unknown]
  - Face oedema [Unknown]
  - Rash maculo-papular [Unknown]
  - Off label use [Unknown]
